FAERS Safety Report 5787259-3 (Version None)
Quarter: 2008Q2

REPORT INFORMATION
  Report Type: 
  Country: None (occurrence: None)
  Receive Date: 20080618
  Receipt Date: 20080604
  Transmission Date: 20081010
  Serious: Yes (Hospitalization)
  Sender: FDA-Public Use
  Company Number: 8033266

PATIENT
  Sex: Male

DRUGS (1)
  1. KEPPRA [Suspect]

REACTIONS (1)
  - RENAL FAILURE [None]
